FAERS Safety Report 20328986 (Version 1)
Quarter: 2022Q1

REPORT INFORMATION
  Report Type: Other
  Country: IT (occurrence: IT)
  Receive Date: 20220112
  Receipt Date: 20220112
  Transmission Date: 20220424
  Serious: Yes (Life-Threatening)
  Sender: FDA-Public Use
  Company Number: IT-CELLTRION HEALTHCARE HUNGARY KFT-2021IT017854

PATIENT

DRUGS (3)
  1. RITUXIMAB [Suspect]
     Active Substance: RITUXIMAB
     Indication: Mantle cell lymphoma
     Dosage: UNK, CYCLIC
     Route: 041
  2. CYTARABINE [Suspect]
     Active Substance: CYTARABINE
     Indication: Mantle cell lymphoma
     Route: 065
  3. BENDAMUSTINE [Suspect]
     Active Substance: BENDAMUSTINE
     Indication: Mantle cell lymphoma
     Route: 065

REACTIONS (9)
  - Infection [Unknown]
  - Thrombocytopenia [Unknown]
  - Skin reaction [Unknown]
  - Neutropenia [Unknown]
  - Febrile neutropenia [Unknown]
  - Drug effective for unapproved indication [Unknown]
  - Anaemia [Unknown]
  - Toxicity to various agents [Unknown]
  - Off label use [Unknown]
